FAERS Safety Report 17072749 (Version 1)
Quarter: 2019Q4

REPORT INFORMATION
  Report Type: Spontaneous
  Country: US (occurrence: US)
  Receive Date: 20191125
  Receipt Date: 20191125
  Transmission Date: 20200122
  Serious: No
  Sender: FDA-Public Use
  Company Number: US-MAYNE PHARMA-2019MYN000710

PATIENT

DRUGS (1)
  1. SORILUX [Suspect]
     Active Substance: CALCIPOTRIENE
     Indication: PSORIASIS
     Dosage: 0.1 %
     Route: 061

REACTIONS (5)
  - Application site pain [Unknown]
  - Application site pruritus [Unknown]
  - Application site irritation [Unknown]
  - Dermatitis contact [Unknown]
  - Application site erythema [Unknown]
